FAERS Safety Report 20483461 (Version 1)
Quarter: 2022Q1

REPORT INFORMATION
  Report Type: Spontaneous
  Country: NG (occurrence: None)
  Receive Date: 20220217
  Receipt Date: 20220217
  Transmission Date: 20220424
  Serious: Yes (Death)
  Sender: FDA-Public Use
  Company Number: NG-ROCHE-3026535

PATIENT
  Age: 27 Year
  Sex: Male

DRUGS (1)
  1. MABTHERA [Suspect]
     Active Substance: RITUXIMAB
     Indication: Dermatomyositis
     Dosage: FIRST DOSE
     Route: 041
     Dates: start: 20220123

REACTIONS (2)
  - Death [Fatal]
  - Off label use [Unknown]
